FAERS Safety Report 8495095-2 (Version None)
Quarter: 2012Q3

REPORT INFORMATION
  Report Type: 
  Country: None (occurrence: None)
  Receive Date: 20120702
  Receipt Date: 20120702
  Transmission Date: 20120928
  Serious: No
  Sender: FDA-Public Use
  Company Number: None

PATIENT
  Sex: Female
  Weight: 85.45 kg

DRUGS (2)
  1. TAXOL [Concomitant]
     Dosage: 254 MG
  2. CARBOPLATIN [Suspect]
     Dosage: 516 MG

REACTIONS (2)
  - NEUTROPHIL COUNT DECREASED [None]
  - PYREXIA [None]
